FAERS Safety Report 12438913 (Version 1)
Quarter: 2016Q2

REPORT INFORMATION
  Report Type: Report from Study
  Country: US (occurrence: US)
  Receive Date: 20160606
  Receipt Date: 20160606
  Transmission Date: 20160815
  Serious: Yes (Death)
  Sender: FDA-Public Use
  Company Number: US-MALLINCKRODT-T201602184

PATIENT
  Sex: Female
  Weight: 11.45 kg

DRUGS (5)
  1. REPOSITORY CORTICOTROPIN INJECTION [Suspect]
     Active Substance: CORTICOTROPIN
     Indication: INFANTILE SPASMS
     Dosage: 34 UNITS BID X 2 WEEKS
     Route: 030
  2. REPOSITORY CORTICOTROPIN INJECTION [Suspect]
     Active Substance: CORTICOTROPIN
     Dosage: 14 UNITS DAILY X 3DAYS
     Route: 030
  3. REPOSITORY CORTICOTROPIN INJECTION [Suspect]
     Active Substance: CORTICOTROPIN
     Dosage: 5 UNITS DAILY X 3 DAYS
     Route: 030
  4. REPOSITORY CORTICOTROPIN INJECTION [Suspect]
     Active Substance: CORTICOTROPIN
     Dosage: 7 UNITS DAILY X 3 DAYS
     Route: 030
  5. REPOSITORY CORTICOTROPIN INJECTION [Suspect]
     Active Substance: CORTICOTROPIN
     Dosage: 5 UNITS EVERY OTHER DAILY X 6 DAYS
     Route: 030

REACTIONS (1)
  - Death [Fatal]
